FAERS Safety Report 5975711-7 (Version None)
Quarter: 2008Q4

REPORT INFORMATION
  Report Type: 
  Country: None (occurrence: None)
  Receive Date: 20081202
  Receipt Date: 20081120
  Transmission Date: 20090506
  Serious: Yes (Other)
  Sender: FDA-Public Use
  Company Number: PHEH2006US15197

PATIENT
  Sex: Male
  Weight: 72.109 kg

DRUGS (9)
  1. AREDIA [Suspect]
     Dosage: 90 MG, UNK
  2. THALIDOMIDE [Concomitant]
  3. DECADRON                                /CAN/ [Concomitant]
  4. PROCRIT [Concomitant]
  5. LEVAQUIN [Concomitant]
  6. PREDNISONE TAB [Concomitant]
  7. CHEMOTHERAPEUTICS NOS [Concomitant]
  8. RADIATION [Concomitant]
  9. AUGMENTIN [Concomitant]

REACTIONS (14)
  - ANHEDONIA [None]
  - ANXIETY [None]
  - BLOOD IMMUNOGLOBULIN G INCREASED [None]
  - BONE LESION [None]
  - CHOLECYSTECTOMY [None]
  - DECREASED INTEREST [None]
  - GENERAL PHYSICAL HEALTH DETERIORATION [None]
  - LUMBAR SPINAL STENOSIS [None]
  - MULTIPLE MYELOMA [None]
  - OSTEOMYELITIS [None]
  - OSTEONECROSIS [None]
  - PAIN [None]
  - SEQUESTRECTOMY [None]
  - TOOTH EXTRACTION [None]
